FAERS Safety Report 8468846-0 (Version None)
Quarter: 2012Q2

REPORT INFORMATION
  Report Type: 
  Country: None (occurrence: None)
  Receive Date: 20120626
  Receipt Date: 20120626
  Transmission Date: 20120825
  Serious: Yes (Hospitalization, Other)
  Sender: FDA-Public Use
  Company Number: CH-BAYER-2012-062868

PATIENT
  Age: 29 Year
  Sex: Male

DRUGS (1)
  1. AVELOX [Suspect]
     Indication: BRONCHITIS
     Dosage: 400 MG, QD
     Dates: start: 20120313, end: 20120315

REACTIONS (3)
  - AFFECT LABILITY [None]
  - CONFUSIONAL STATE [None]
  - THINKING ABNORMAL [None]
